FAERS Safety Report 10068705 (Version 1)
Quarter: 2014Q2

REPORT INFORMATION
  Report Type: Spontaneous
  Country: SE (occurrence: SE)
  Receive Date: 20140409
  Receipt Date: 20140409
  Transmission Date: 20141212
  Serious: Yes (Other)
  Sender: FDA-Public Use
  Company Number: SE-ASTRAZENECA-2014SE24131

PATIENT
  Age: 70 Year
  Sex: Female

DRUGS (2)
  1. TENORMIN [Suspect]
     Indication: HYPERTENSION
     Route: 048
     Dates: start: 1994
  2. PLENDIL [Concomitant]
     Indication: HYPERTENSION

REACTIONS (3)
  - Pharyngeal polyp [Recovered/Resolved]
  - Palpitations [Unknown]
  - Blood pressure abnormal [Unknown]
